FAERS Safety Report 4665533-1 (Version None)
Quarter: 2005Q2

REPORT INFORMATION
  Report Type: 
  Country: None (occurrence: None)
  Receive Date: 20050518
  Receipt Date: 20050518
  Transmission Date: 20051028
  Serious: No
  Sender: FDA-Public Use
  Company Number: None

PATIENT
  Age: 42 Year
  Sex: Male
  Weight: 48 kg

DRUGS (1)
  1. PROTONIX [Suspect]
     Dosage: 40 MG  DAILY  INTRAVENOUS
     Route: 042
     Dates: start: 20040801, end: 20040804

REACTIONS (5)
  - ABDOMINAL PAIN [None]
  - BACK PAIN [None]
  - NAUSEA [None]
  - THROMBOCYTOPENIA [None]
  - VOMITING [None]
